FAERS Safety Report 5098356-2 (Version None)
Quarter: 2006Q3

REPORT INFORMATION
  Report Type: 
  Country: None (occurrence: None)
  Receive Date: 20060906
  Receipt Date: 19990601
  Transmission Date: 20061208
  Serious: Yes (Death, Hospitalization)
  Sender: FDA-Public Use
  Company Number: TOS-000091

PATIENT
  Age: 53 Year
  Sex: Female
  Weight: 76 kg

DRUGS (7)
  1. BEXXAR [Suspect]
     Indication: NON-HODGKIN'S LYMPHOMA
     Route: 042
     Dates: start: 19990324, end: 19990324
  2. IODINE I 131 TOSITUMOMAB [Suspect]
     Indication: NON-HODGKIN'S LYMPHOMA
     Route: 042
     Dates: start: 19990324, end: 19990324
  3. BEXXAR [Suspect]
     Route: 042
     Dates: start: 19990402, end: 19990402
  4. IODINE I 131 TOSITUMOMAB [Suspect]
     Route: 042
     Dates: start: 19990402, end: 19990402
  5. SPIRONOLACTONE [Suspect]
     Indication: DRUG USE FOR UNKNOWN INDICATION
     Route: 065
  6. LASIX [Suspect]
     Indication: DRUG USE FOR UNKNOWN INDICATION
     Route: 065
  7. DIGOXIN [Concomitant]

REACTIONS (15)
  - ASCITES [None]
  - DEHYDRATION [None]
  - DIZZINESS [None]
  - FALL [None]
  - FATIGUE [None]
  - HAEMOGLOBIN DECREASED [None]
  - HEAD INJURY [None]
  - HYPOTENSION [None]
  - LETHARGY [None]
  - LYMPHADENOPATHY [None]
  - MALIGNANT NEOPLASM PROGRESSION [None]
  - NON-HODGKIN'S LYMPHOMA [None]
  - ORAL INTAKE REDUCED [None]
  - PLEURAL EFFUSION [None]
  - TACHYCARDIA [None]
